FAERS Safety Report 4900784-X (Version None)
Quarter: 2006Q1

REPORT INFORMATION
  Report Type: 
  Country: None (occurrence: None)
  Receive Date: 20060201
  Receipt Date: 20060119
  Transmission Date: 20060701
  Serious: Yes (Other)
  Sender: FDA-Public Use
  Company Number: 2006JP000126

PATIENT
  Age: 36 Year
  Sex: Female
  Weight: 43.6 kg

DRUGS (5)
  1. PROGRAF [Suspect]
     Indication: RENAL TRANSPLANT
     Dates: start: 20041201
  2. METHYLPREDNISOLONE [Concomitant]
  3. MYCOPHENOLATE MOFETIL (MYCOPHENOLATE MOFETIL) [Concomitant]
  4. ANGIOTENSIN CONVERTING ENZYME INHIBITOR (ACEI) [Concomitant]
  5. AGIOTENSIN II ANTAGONISTS [Concomitant]

REACTIONS (24)
  - BIOPSY KIDNEY ABNORMAL [None]
  - BLOOD ALBUMIN DECREASED [None]
  - BLOOD CREATINE INCREASED [None]
  - COMPUTERISED TOMOGRAM ABNORMAL [None]
  - DIALYSIS [None]
  - FACE OEDEMA [None]
  - GASTROINTESTINAL OEDEMA [None]
  - HAEMODIALYSIS [None]
  - HYDRONEPHROSIS [None]
  - ILEUS [None]
  - LYMPHOCELE [None]
  - NEPHROSCLEROSIS [None]
  - NEPHROTIC SYNDROME [None]
  - OEDEMA PERIPHERAL [None]
  - OOPHORITIS [None]
  - OVARIAN MASS [None]
  - PERITONEAL DISORDER [None]
  - POUCHITIS [None]
  - PROTEIN TOTAL DECREASED [None]
  - PROTEIN URINE PRESENT [None]
  - PROTEINURIA [None]
  - RENAL DISORDER [None]
  - URINE OUTPUT DECREASED [None]
  - WEIGHT INCREASED [None]
